FAERS Safety Report 6646904-0 (Version None)
Quarter: 2010Q1

REPORT INFORMATION
  Report Type: 
  Country: None (occurrence: None)
  Receive Date: 20100318
  Receipt Date: 20100305
  Transmission Date: 20100710
  Serious: Yes (Hospitalization, Other)
  Sender: FDA-Public Use
  Company Number: AUR-APL-2010-00759

PATIENT
  Age: 90 Year
  Sex: Female
  Weight: 40.8237 kg

DRUGS (8)
  1. METOPROLOL 25MG TABLETS (GREENSTONE) [Suspect]
     Dosage: 12.5MG, BID
  2. ATORVASTATIN CALCIUM [Suspect]
     Indication: BLOOD CHOLESTEROL
     Dosage: 5MG, DAILY
  3. LEVOTHYROXINE SODIUM [Concomitant]
  4. DIGOXIN [Concomitant]
  5. WARFARIN SODIUM [Concomitant]
  6. TOVIAZ [Concomitant]
  7. ZOMISAMIDE [Concomitant]
  8. ISOSORBIDE DINITRATE [Concomitant]

REACTIONS (4)
  - CEREBROVASCULAR ACCIDENT [None]
  - SURGERY [None]
  - UNEVALUABLE EVENT [None]
  - WRONG TECHNIQUE IN DRUG USAGE PROCESS [None]
